FAERS Safety Report 12187174 (Version 1)
Quarter: 2016Q1

REPORT INFORMATION
  Report Type: Spontaneous
  Country: US (occurrence: None)
  Receive Date: 20160316
  Receipt Date: 20160316
  Transmission Date: 20160526
  Serious: Yes (Other)
  Sender: FDA-Public Use
  Company Number: None

PATIENT
  Age: 55 Year
  Sex: Female
  Weight: 77.11 kg

DRUGS (10)
  1. CALCIUM W/ D3 [Concomitant]
  2. ALOE VERA JUICE [Concomitant]
  3. PREDNISONE. [Concomitant]
     Active Substance: PREDNISONE
  4. TACROLIMUS. [Concomitant]
     Active Substance: TACROLIMUS
  5. MYCOPHENOLIC ACID. [Concomitant]
     Active Substance: MYCOPHENOLIC ACID
  6. LISINOPRIL. [Concomitant]
     Active Substance: LISINOPRIL
  7. DIGESTIVE ENZYMES [Concomitant]
     Active Substance: UNSPECIFIED INGREDIENT
  8. PAPAYA ENZYMES [Concomitant]
  9. DEXILANT [Suspect]
     Active Substance: DEXLANSOPRAZOLE
     Indication: GASTROOESOPHAGEAL REFLUX DISEASE
     Route: 048
     Dates: start: 20160213, end: 20160213
  10. MAG OX [Concomitant]
     Active Substance: MAGNESIUM OXIDE

REACTIONS (1)
  - Vomiting [None]

NARRATIVE: CASE EVENT DATE: 20160213
